FAERS Safety Report 13883692 (Version 5)
Quarter: 2017Q4

REPORT INFORMATION
  Report Type: Report from Study
  Country: None (occurrence: US)
  Receive Date: 20170819
  Receipt Date: 20171228
  Transmission Date: 20180320
  Serious: No
  Sender: FDA-Public Use
  Company Number: US-ABBVIE-17K-163-2030531-00

PATIENT
  Age: 56 Year
  Sex: Female

DRUGS (2)
  1. HUMIRA [Suspect]
     Active Substance: ADALIMUMAB
     Indication: COLITIS ULCERATIVE
     Route: 058
  2. HUMIRA [Suspect]
     Active Substance: ADALIMUMAB
     Indication: RHEUMATOID ARTHRITIS

REACTIONS (10)
  - Allergy to surgical sutures [Recovering/Resolving]
  - Blister [Not Recovered/Not Resolved]
  - Menorrhagia [Recovered/Resolved]
  - Pruritus allergic [Not Recovered/Not Resolved]
  - Purulence [Not Recovered/Not Resolved]
  - Joint swelling [Not Recovered/Not Resolved]
  - Injection site pain [Unknown]
  - Post procedural complication [Unknown]
  - Peripheral swelling [Not Recovered/Not Resolved]
  - Ocular hyperaemia [Not Recovered/Not Resolved]

NARRATIVE: CASE EVENT DATE: 201708
